FAERS Safety Report 6108130-3 (Version None)
Quarter: 2009Q1

REPORT INFORMATION
  Report Type: 
  Country: None (occurrence: None)
  Receive Date: 20090304
  Receipt Date: 20080111
  Transmission Date: 20090719
  Serious: Yes (Hospitalization)
  Sender: FDA-Public Use
  Company Number: US-000048

PATIENT
  Age: 72 Year
  Sex: Female

DRUGS (3)
  1. ISOVUE-128 [Suspect]
     Indication: COMPUTERISED TOMOGRAM ABDOMEN
     Dosage: 15ML QD INTRAVENOUS
     Route: 042
     Dates: start: 20080110, end: 20080110
  2. ISOVUE-128 [Suspect]
     Indication: NEOPLASM MALIGNANT
     Dosage: 15ML QD INTRAVENOUS
     Route: 042
     Dates: start: 20080110, end: 20080110
  3. CHEMOTHERAPY [Concomitant]

REACTIONS (3)
  - EXTRAVASATION [None]
  - OEDEMA PERIPHERAL [None]
  - PAIN [None]
